FAERS Safety Report 10153158 (Version 1)
Quarter: 2014Q2

REPORT INFORMATION
  Report Type: Report from Study
  Country: DE (occurrence: DE)
  Receive Date: 20140505
  Receipt Date: 20140505
  Transmission Date: 20141212
  Serious: Yes (Other)
  Sender: FDA-Public Use
  Company Number: DE-BAYER-2014-063967

PATIENT
  Sex: Male

DRUGS (2)
  1. SORAFENIB (RAF KINASE INHIBITOR) [Suspect]
     Indication: METASTASES TO LUNG
     Dosage: 2X2 TABLETS
     Route: 048
     Dates: start: 201403
  2. SORAFENIB (RAF KINASE INHIBITOR) [Suspect]
     Indication: METASTASES TO LUNG
     Dosage: 2X1 TABLETS
     Dates: start: 201404

REACTIONS (5)
  - Skin ulcer [None]
  - Abasia [None]
  - Malaise [None]
  - Pain in extremity [None]
  - Off label use [None]
